FAERS Safety Report 6337873-1 (Version None)
Quarter: 2009Q3

REPORT INFORMATION
  Report Type: 
  Country: None (occurrence: None)
  Receive Date: 20090902
  Receipt Date: 20090831
  Transmission Date: 20100115
  Serious: Yes (Hospitalization, Other)
  Sender: FDA-Public Use
  Company Number: IT-ROXANE LABORATORIES, INC.-2009-RO-00880RO

PATIENT
  Age: 45 Year
  Sex: Female

DRUGS (7)
  1. RISPERIDONE [Suspect]
     Indication: SCHIZOAFFECTIVE DISORDER
     Dosage: 2 MG
     Dates: start: 20060210
  2. RISPERIDONE [Suspect]
     Dosage: 2 MG
  3. SALINE [Concomitant]
     Indication: ELECTROLYTE IMBALANCE
  4. BICARBONATE [Concomitant]
     Indication: ACIDOSIS
  5. ACETAMINOPHEN [Concomitant]
     Dosage: 1500 MG
  6. BROMOCRIPTINE [Concomitant]
     Dosage: 15 MG
  7. DIAZEPAM [Concomitant]
     Dosage: 2 MG

REACTIONS (11)
  - ACIDOSIS [None]
  - CONFUSIONAL STATE [None]
  - CONVULSION [None]
  - DYSPHORIA [None]
  - ELECTROLYTE IMBALANCE [None]
  - HYPONATRAEMIA [None]
  - LIVER DISORDER [None]
  - NEUROLEPTIC MALIGNANT SYNDROME [None]
  - POLYDIPSIA PSYCHOGENIC [None]
  - PYREXIA [None]
  - VOMITING [None]
